FAERS Safety Report 13051573 (Version 1)
Quarter: 2016Q4

REPORT INFORMATION
  Report Type: Spontaneous
  Country: US (occurrence: US)
  Receive Date: 20161221
  Receipt Date: 20161221
  Transmission Date: 20170207
  Serious: Yes (Other)
  Sender: FDA-Public Use
  Company Number: None

PATIENT
  Age: 8 Year
  Sex: Male
  Weight: 181 kg

DRUGS (1)
  1. LEVETRACETAM 100MG/ML [Suspect]
     Active Substance: LEVETIRACETAM
     Indication: EPILEPSY
     Dosage: UMI
     Route: 048
     Dates: end: 2010

REACTIONS (2)
  - Seizure [None]
  - Treatment failure [None]
